FAERS Safety Report 9216330 (Version 1)
Quarter: 2013Q2

REPORT INFORMATION
  Report Type: Spontaneous
  Country: IT (occurrence: IT)
  Receive Date: 20130408
  Receipt Date: 20130408
  Transmission Date: 20140414
  Serious: Yes (Other)
  Sender: FDA-Public Use
  Company Number: PHHY2013IT032825

PATIENT
  Age: 57 Year
  Sex: Male

DRUGS (2)
  1. CICLOSPORIN [Suspect]
     Indication: HEART TRANSPLANT
     Dosage: 3 MG/KG, PER DAY
  2. EVEROLIMUS [Suspect]
     Indication: HEART TRANSPLANT
     Dosage: 1.5 MG/KG, PER DAY

REACTIONS (2)
  - Human herpesvirus 8 infection [Unknown]
  - Campbell de Morgan spots [Unknown]
